FAERS Safety Report 11099167 (Version 2)
Quarter: 2015Q2

REPORT INFORMATION
  Report Type: Spontaneous
  Country: JP (occurrence: JP)
  Receive Date: 20150508
  Receipt Date: 20150513
  Transmission Date: 20150821
  Serious: Yes (Other)
  Sender: FDA-Public Use
  Company Number: JP-SHIRE-JP201503814

PATIENT
  Sex: Female

DRUGS (7)
  1. HYDREA [Concomitant]
     Active Substance: HYDROXYUREA
     Dosage: 1 DF, 1X/DAY:QD
     Route: 048
     Dates: start: 20150227, end: 20150326
  2. AGRYLIN [Suspect]
     Active Substance: ANAGRELIDE HYDROCHLORIDE
     Dosage: 2 DF, UNKNOWN
     Route: 048
     Dates: start: 20150216, end: 20150326
  3. AGRYLIN [Suspect]
     Active Substance: ANAGRELIDE HYDROCHLORIDE
     Dosage: 2 DF, 2X/DAY:BID
     Route: 048
     Dates: start: 20150327
  4. AGRYLIN [Suspect]
     Active Substance: ANAGRELIDE HYDROCHLORIDE
     Dosage: 2 DF, UNKNOWN
     Route: 048
     Dates: start: 20150427
  5. HYDREA [Concomitant]
     Active Substance: HYDROXYUREA
     Indication: ESSENTIAL THROMBOCYTHAEMIA
     Dosage: 4 DF, UNKNOWN
     Route: 048
     Dates: end: 20150226
  6. HYDREA [Concomitant]
     Active Substance: HYDROXYUREA
     Dosage: 2 DF, UNKNOWN
     Route: 048
     Dates: start: 20150327
  7. AGRYLIN [Suspect]
     Active Substance: ANAGRELIDE HYDROCHLORIDE
     Indication: ESSENTIAL THROMBOCYTHAEMIA
     Dosage: 1 DF, 1X/DAY:QD
     Route: 048
     Dates: start: 20150210, end: 20150215

REACTIONS (2)
  - Basedow^s disease [Not Recovered/Not Resolved]
  - Tachycardia paroxysmal [Recovered/Resolved]

NARRATIVE: CASE EVENT DATE: 20150421
